FAERS Safety Report 15470757 (Version 1)
Quarter: 2018Q4

REPORT INFORMATION
  Report Type: Spontaneous
  Country: CO (occurrence: CO)
  Receive Date: 20181005
  Receipt Date: 20181005
  Transmission Date: 20190205
  Serious: Yes (Other)
  Sender: FDA-Public Use
  Company Number: CO-BIOMARINAP-CO-2018-120201

PATIENT
  Sex: Female

DRUGS (1)
  1. VIMIZIM [Suspect]
     Active Substance: ELOSULFASE ALFA
     Indication: MUCOPOLYSACCHARIDOSIS IV
     Dosage: UNK
     Route: 065
     Dates: start: 20150501, end: 201706

REACTIONS (13)
  - Obesity [Unknown]
  - Disease progression [Unknown]
  - Joint contracture [Unknown]
  - Depression [Unknown]
  - Deafness [Unknown]
  - Pain [Unknown]
  - Urinary glycosaminoglycans [Unknown]
  - Metabolic disorder [Unknown]
  - Spinal cord compression [Unknown]
  - Respiratory disorder [Unknown]
  - Dental care [Unknown]
  - Corneal opacity [Unknown]
  - Fatigue [Unknown]
